FAERS Safety Report 19588731 (Version 1)
Quarter: 2021Q3

REPORT INFORMATION
  Report Type: Spontaneous
  Country: US (occurrence: US)
  Receive Date: 20210721
  Receipt Date: 20210721
  Transmission Date: 20211014
  Serious: Yes (Hospitalization)
  Sender: FDA-Public Use
  Company Number: None

PATIENT
  Age: 13 Year
  Sex: Male

DRUGS (1)
  1. HUMIRA [Suspect]
     Active Substance: ADALIMUMAB
     Indication: ACUTE HAEMORRHAGIC ULCERATIVE COLITIS
     Route: 058
     Dates: start: 20210109

REACTIONS (2)
  - Colitis [None]
  - Infection [None]

NARRATIVE: CASE EVENT DATE: 20210710
